FAERS Safety Report 11935048 (Version 3)
Quarter: 2018Q2

REPORT INFORMATION
  Report Type: Spontaneous
  Country: US (occurrence: US)
  Receive Date: 20160121
  Receipt Date: 20180403
  Transmission Date: 20180711
  Serious: Yes (Hospitalization)
  Sender: FDA-Public Use
  Company Number: US-UNITED THERAPEUTICS-UNT-2016-000349

PATIENT
  Age: 45 Year
  Sex: Female
  Weight: 71.3 kg

DRUGS (6)
  1. DILTIAZEM. [Concomitant]
     Active Substance: DILTIAZEM
     Indication: PRODUCT USED FOR UNKNOWN INDICATION
  2. TYVASO [Suspect]
     Active Substance: TREPROSTINIL
     Indication: PULMONARY ARTERIAL HYPERTENSION
     Dosage: 54 ?G, QID
  3. TYVASO [Suspect]
     Active Substance: TREPROSTINIL
     Indication: PULMONARY HYPERTENSION
     Dosage: 18-54 ?G, QID
     Dates: start: 20140505, end: 201601
  4. PHOSPHODIESTERASE INHIBITORS [Suspect]
     Active Substance: UNSPECIFIED INGREDIENT
     Indication: PULMONARY ARTERIAL HYPERTENSION
     Route: 065
  5. TRACLEER [Concomitant]
     Active Substance: BOSENTAN
     Indication: PRODUCT USED FOR UNKNOWN INDICATION
  6. REVATIO [Concomitant]
     Active Substance: SILDENAFIL CITRATE
     Indication: PRODUCT USED FOR UNKNOWN INDICATION

REACTIONS (4)
  - Cardiac failure congestive [Unknown]
  - Treatment noncompliance [Unknown]
  - Headache [Unknown]
  - Fluid overload [Unknown]

NARRATIVE: CASE EVENT DATE: 201601
